FAERS Safety Report 6196119-8 (Version None)
Quarter: 2009Q2

REPORT INFORMATION
  Report Type: 
  Country: None (occurrence: None)
  Receive Date: 20090520
  Receipt Date: 20090518
  Transmission Date: 20091009
  Serious: Yes (Other)
  Sender: FDA-Public Use
  Company Number: US-PFIZER INC-2009206684

PATIENT
  Sex: Female
  Weight: 65 kg

DRUGS (1)
  1. LIPITOR [Suspect]
     Indication: BLOOD CHOLESTEROL INCREASED
     Dosage: 20 MG, 1X/DAY
     Dates: start: 20050101

REACTIONS (5)
  - BREAST CANCER [None]
  - CATARACT [None]
  - GLAUCOMA [None]
  - HYPERTENSION [None]
  - MUSCLE SPASMS [None]
